FAERS Safety Report 23178265 (Version 2)
Quarter: 2023Q4

REPORT INFORMATION
  Report Type: Report from Study
  Country: JP (occurrence: JP)
  Receive Date: 20231113
  Receipt Date: 20231115
  Transmission Date: 20240110
  Serious: No
  Sender: FDA-Public Use
  Company Number: JP-ALXN-202108JPN000002JP

PATIENT
  Sex: Female
  Weight: 10.6 kg

DRUGS (1)
  1. STRENSIQ [Suspect]
     Active Substance: ASFOTASE ALFA
     Indication: Hypophosphatasia
     Dosage: 2 MG/KG, TIW
     Route: 058
     Dates: start: 20211019, end: 20231018

REACTIONS (2)
  - Hypoacusis [Unknown]
  - Tooth loss [Unknown]
